FAERS Safety Report 8129370-8 (Version None)
Quarter: 2012Q1

REPORT INFORMATION
  Report Type: 
  Country: None (occurrence: None)
  Receive Date: 20120210
  Receipt Date: 20120206
  Transmission Date: 20120608
  Serious: Yes (Hospitalization)
  Sender: FDA-Public Use
  Company Number: US-GILEAD-2012-0048734

PATIENT
  Sex: Female

DRUGS (3)
  1. EPOPROSTENOL [Concomitant]
  2. REVATIO [Concomitant]
  3. LETAIRIS [Suspect]
     Indication: PRODUCT USED FOR UNKNOWN INDICATION
     Dosage: 10 MG, UNK
     Route: 048
     Dates: start: 20081106

REACTIONS (2)
  - DEVICE RELATED INFECTION [None]
  - LOCALISED INFECTION [None]
